FAERS Safety Report 7813236-4 (Version None)
Quarter: 2011Q4

REPORT INFORMATION
  Report Type: 
  Country: None (occurrence: None)
  Receive Date: 20111013
  Receipt Date: 20111011
  Transmission Date: 20120403
  Serious: Yes (Hospitalization, Other)
  Sender: FDA-Public Use
  Company Number: JP-ABBOTT-11P-087-0851240-00

PATIENT
  Sex: Male
  Weight: 78 kg

DRUGS (3)
  1. ENTERAL [Concomitant]
     Indication: PRODUCT USED FOR UNKNOWN INDICATION
  2. HUMIRA [Suspect]
     Indication: CROHN'S DISEASE
     Route: 058
     Dates: start: 20110326
  3. MESALAMINE [Concomitant]
     Indication: CROHN'S DISEASE
     Dosage: 3GRAM DAILY
     Route: 048
     Dates: end: 20110309

REACTIONS (4)
  - SUICIDAL IDEATION [None]
  - ADJUSTMENT DISORDER [None]
  - SUICIDE ATTEMPT [None]
  - EDUCATIONAL PROBLEM [None]
